FAERS Safety Report 24209744 (Version 2)
Quarter: 2024Q4

REPORT INFORMATION
  Report Type: Spontaneous
  Country: RO (occurrence: RO)
  Receive Date: 20240814
  Receipt Date: 20241011
  Transmission Date: 20250115
  Serious: Yes (Other)
  Sender: PFIZER
  Company Number: RO-PFIZER INC-PV202400100416

PATIENT
  Age: 21 Year
  Sex: Female
  Weight: 174 kg

DRUGS (1)
  1. DOSTINEX [Suspect]
     Active Substance: CABERGOLINE
     Indication: Blood prolactin increased
     Dosage: 0.5 TABLETS EVERY 3 DAYS
     Route: 048
     Dates: start: 20220813

REACTIONS (15)
  - Systemic lupus erythematosus [Unknown]
  - Scleroderma [Unknown]
  - Hypersensitivity [Not Recovered/Not Resolved]
  - Eosinophilic oesophagitis [Not Recovered/Not Resolved]
  - Dysphagia [Not Recovered/Not Resolved]
  - Gastroenteritis [Not Recovered/Not Resolved]
  - Transaminases increased [Recovering/Resolving]
  - Jaundice [Not Recovered/Not Resolved]
  - Bone pain [Unknown]
  - Arthralgia [Unknown]
  - Anaemia [Unknown]
  - Weight decreased [Unknown]
  - Blood bilirubin increased [Unknown]
  - Diarrhoea [Unknown]
  - Oesophagitis [Unknown]

NARRATIVE: CASE EVENT DATE: 20220813
